FAERS Safety Report 5078300-4 (Version None)
Quarter: 2006Q3

REPORT INFORMATION
  Report Type: 
  Country: None (occurrence: None)
  Receive Date: 20060811
  Receipt Date: 20060712
  Transmission Date: 20061208
  Serious: Yes (Life-Threatening, Hospitalization, Disabling, Other)
  Sender: FDA-Public Use
  Company Number: US-MERCK-0607USA02433

PATIENT
  Age: 83 Year
  Sex: Male
  Weight: 80 kg

DRUGS (15)
  1. VYTORIN [Suspect]
     Indication: BLOOD CHOLESTEROL INCREASED
     Route: 048
     Dates: start: 20051001, end: 20060701
  2. VYTORIN [Suspect]
     Indication: DYSLIPIDAEMIA
     Route: 048
     Dates: start: 20051001, end: 20060701
  3. ASPIRIN [Concomitant]
     Route: 048
  4. STARLIX [Concomitant]
     Route: 065
  5. NORVASC [Concomitant]
     Route: 048
  6. LASIX [Concomitant]
     Route: 048
     Dates: end: 20060701
  7. ISOSORBIDE [Concomitant]
     Route: 065
  8. PROPRANOLOL HYDROCHLORIDE [Concomitant]
     Route: 065
  9. PLENDIL [Concomitant]
     Route: 065
  10. DETROL LA [Concomitant]
     Route: 065
  11. FLOMAX (MORNIFLUMATE) [Concomitant]
     Route: 065
  12. TOLINASE [Concomitant]
     Route: 065
  13. VITAMINS (UNSPECIFIED) [Concomitant]
     Route: 065
  14. HYDRALAZINE [Concomitant]
     Route: 065
  15. NIFEREX [Concomitant]
     Route: 065

REACTIONS (15)
  - ASTHENIA [None]
  - BACK PAIN [None]
  - BALANCE DISORDER [None]
  - CHEST PAIN [None]
  - DIZZINESS [None]
  - DYSPNOEA EXERTIONAL [None]
  - FALL [None]
  - INCONTINENCE [None]
  - MUSCULAR WEAKNESS [None]
  - PROSTATIC DISORDER [None]
  - RENAL FAILURE [None]
  - RENAL FAILURE ACUTE [None]
  - RHABDOMYOLYSIS [None]
  - SINUS BRADYCARDIA [None]
  - URINARY TRACT INFECTION [None]
